FAERS Safety Report 5778437-8 (Version None)
Quarter: 2008Q2

REPORT INFORMATION
  Report Type: 
  Country: None (occurrence: None)
  Receive Date: 20080618
  Receipt Date: 20080618
  Transmission Date: 20081010
  Serious: No
  Sender: FDA-Public Use
  Company Number: None

PATIENT
  Age: 79 Year
  Sex: Male

DRUGS (1)
  1. OSELTAMIVIR [Suspect]
     Indication: ANTIVIRAL PROPHYLAXIS
     Dosage: 75 MG EVERY DAY PO
     Route: 048
     Dates: start: 20080417, end: 20080421

REACTIONS (4)
  - CONFUSIONAL STATE [None]
  - DELIRIUM [None]
  - DELUSION [None]
  - PSYCHIATRIC SYMPTOM [None]
